FAERS Safety Report 6732893-7 (Version None)
Quarter: 2010Q2

REPORT INFORMATION
  Report Type: 
  Country: None (occurrence: None)
  Receive Date: 20100519
  Receipt Date: 20100506
  Transmission Date: 20101027
  Serious: Yes (Hospitalization)
  Sender: FDA-Public Use
  Company Number: US-WATSON-2010-04155

PATIENT
  Age: 49 Year
  Sex: Female
  Weight: 53.515 kg

DRUGS (15)
  1. FENTANYL-50 [Suspect]
     Indication: PAIN
     Dosage: 1 PATCH, Q72H (HAD 2 PATCHES ON AT THE TIME OF ER)
     Route: 062
     Dates: start: 20100318
  2. FENTANYL-50 [Suspect]
     Dosage: 1 PATCH, Q72H
     Route: 062
     Dates: start: 20100101, end: 20100317
  3. FENTANYL-25 [Suspect]
     Indication: PAIN
     Dosage: UNK
     Route: 062
     Dates: start: 20100501
  4. ESTROGEN NOS [Concomitant]
     Indication: HORMONE THERAPY
     Dosage: 1 TABLET, DAILY
     Route: 048
  5. LEXAPRO [Concomitant]
     Indication: DEPRESSION
     Dosage: 1 TABLET, DAILY
     Route: 048
  6. DIGOXIN [Concomitant]
     Indication: DRUG USE FOR UNKNOWN INDICATION
     Dosage: UNK
     Route: 065
  7. ROBAXIN [Concomitant]
     Indication: DRUG USE FOR UNKNOWN INDICATION
     Dosage: UNK
     Route: 065
  8. VICODIN [Concomitant]
     Indication: DRUG USE FOR UNKNOWN INDICATION
     Dosage: UNK
     Route: 065
  9. PREDNISONE TAB [Concomitant]
     Indication: DRUG USE FOR UNKNOWN INDICATION
     Dosage: UNK
     Route: 065
  10. FIORICET [Concomitant]
     Indication: DRUG USE FOR UNKNOWN INDICATION
     Dosage: UNK
     Route: 065
  11. OXYCONTIN [Concomitant]
     Indication: DRUG USE FOR UNKNOWN INDICATION
     Dosage: UNK
     Route: 065
  12. MORPHINE [Concomitant]
     Indication: DRUG USE FOR UNKNOWN INDICATION
     Dosage: UNK
     Route: 065
  13. HORMONES NOS [Concomitant]
     Indication: HORMONE REPLACEMENT THERAPY
     Dosage: UNK
     Route: 065
  14. ANTIBIOTICS [Concomitant]
     Indication: INFECTION
     Dosage: UNK
     Route: 065
  15. DARVOCET [Concomitant]
     Indication: DRUG USE FOR UNKNOWN INDICATION
     Dosage: UNK
     Route: 065

REACTIONS (25)
  - ABNORMAL BEHAVIOUR [None]
  - ACCIDENTAL OVERDOSE [None]
  - AGITATION [None]
  - BIPOLAR DISORDER [None]
  - CONFUSIONAL STATE [None]
  - DELIRIUM [None]
  - DEPERSONALISATION [None]
  - DISORIENTATION [None]
  - DRUG ABUSER [None]
  - DRUG INEFFECTIVE [None]
  - EMOTIONAL DISORDER [None]
  - FALL [None]
  - HALLUCINATION [None]
  - HALLUCINATIONS, MIXED [None]
  - INAPPROPRIATE SCHEDULE OF DRUG ADMINISTRATION [None]
  - INCOHERENT [None]
  - INSOMNIA [None]
  - MEMORY IMPAIRMENT [None]
  - NIGHTMARE [None]
  - OVERDOSE [None]
  - PSYCHOTIC DISORDER [None]
  - RESTLESSNESS [None]
  - RIB FRACTURE [None]
  - SPEECH DISORDER [None]
  - SUBSTANCE ABUSE [None]
